FAERS Safety Report 13525347 (Version 1)
Quarter: 2017Q2

REPORT INFORMATION
  Report Type: Spontaneous
  Country: US (occurrence: US)
  Receive Date: 20170508
  Receipt Date: 20170508
  Transmission Date: 20170830
  Serious: Yes (Other)
  Sender: FDA-Public Use
  Company Number: US-ROCHE-1148548

PATIENT
  Age: 52 Year
  Sex: Male

DRUGS (4)
  1. OXALIPLATIN. [Concomitant]
     Active Substance: OXALIPLATIN
     Indication: COLON CANCER METASTATIC
  2. LEUCOVORIN. [Concomitant]
     Active Substance: LEUCOVORIN
     Indication: COLON CANCER METASTATIC
  3. BEVACIZUMAB [Suspect]
     Active Substance: BEVACIZUMAB
     Indication: COLON CANCER METASTATIC
     Dosage: 4TH DOSE OF CHEMOTHERAPY
     Route: 065
  4. 5-FLUOROURACIL [Concomitant]
     Active Substance: FLUOROURACIL
     Indication: COLON CANCER METASTATIC

REACTIONS (1)
  - Enterocutaneous fistula [Recovered/Resolved]
